FAERS Safety Report 18141333 (Version 1)
Quarter: 2020Q3

REPORT INFORMATION
  Report Type: Spontaneous
  Country: JP (occurrence: JP)
  Receive Date: 20200812
  Receipt Date: 20200812
  Transmission Date: 20201103
  Serious: Yes (Hospitalization)
  Sender: FDA-Public Use
  Company Number: JP-EISAI MEDICAL RESEARCH-EC-2020-070678

PATIENT
  Age: 74 Year
  Sex: Female

DRUGS (3)
  1. PERAMPANEL [Suspect]
     Active Substance: PERAMPANEL
     Indication: TEMPORAL LOBE EPILEPSY
     Route: 048
  2. LACOSAMIDE. [Concomitant]
     Active Substance: LACOSAMIDE
     Indication: TEMPORAL LOBE EPILEPSY
     Route: 048
  3. LEVETIRACETAM. [Concomitant]
     Active Substance: LEVETIRACETAM
     Indication: TEMPORAL LOBE EPILEPSY
     Route: 048

REACTIONS (5)
  - Inflammation [Unknown]
  - Pyrexia [Unknown]
  - Toxicity to various agents [Recovering/Resolving]
  - Altered state of consciousness [Recovering/Resolving]
  - Bronchitis bacterial [Unknown]
